FAERS Safety Report 8150463-3 (Version None)
Quarter: 2012Q1

REPORT INFORMATION
  Report Type: 
  Country: None (occurrence: None)
  Receive Date: 20120220
  Receipt Date: 20120213
  Transmission Date: 20120608
  Serious: Yes (Hospitalization)
  Sender: FDA-Public Use
  Company Number: NO-PFIZER INC-2012037986

PATIENT
  Age: 45 Year
  Sex: Female

DRUGS (2)
  1. ARMODAFINIL [Suspect]
     Indication: VULVOVAGINAL CANDIDIASIS
     Dosage: 200 MG, 1X/DAY
     Route: 048
     Dates: start: 20120112, end: 20120130
  2. LEVONORGESTREL [Concomitant]
     Indication: CONTRACEPTION
     Route: 015
     Dates: start: 20070701

REACTIONS (1)
  - CONSTIPATION [None]
